FAERS Safety Report 8683665 (Version 4)
Quarter: 2013Q3

REPORT INFORMATION
  Report Type: Spontaneous
  Country: ES (occurrence: ES)
  Receive Date: 20120726
  Receipt Date: 20130709
  Transmission Date: 20140515
  Serious: Yes (Death)
  Sender: FDA-Public Use
  Company Number: ES-JNJFOC-20120708420

PATIENT
  Age: 39 Year
  Sex: Female
  Weight: 104 kg

DRUGS (5)
  1. REMICADE [Suspect]
     Indication: PSORIASIS
     Route: 042
     Dates: start: 20120201, end: 20120507
  2. REMICADE [Suspect]
     Indication: PSORIASIS
     Route: 042
     Dates: start: 200904, end: 200906
  3. LINAGLIPTIN [Concomitant]
     Route: 065
  4. CIPRALEX [Concomitant]
     Route: 065
  5. ATARAX [Concomitant]
     Route: 065

REACTIONS (2)
  - Acute myocardial infarction [Fatal]
  - Pulmonary oedema [Fatal]
